FAERS Safety Report 7758486-0 (Version None)
Quarter: 2011Q3

REPORT INFORMATION
  Report Type: 
  Country: None (occurrence: None)
  Receive Date: 20110914
  Receipt Date: 20110902
  Transmission Date: 20111222
  Serious: Yes (Hospitalization, Other)
  Sender: FDA-Public Use
  Company Number: 2011SP041931

PATIENT
  Age: 65 Year
  Sex: Female

DRUGS (2)
  1. PEG-INTRON [Suspect]
     Indication: HEPATITIS C
     Dates: start: 20110801
  2. RIBAVIRIN [Suspect]
     Indication: HEPATITIS C
     Dates: start: 20110801

REACTIONS (2)
  - FALL [None]
  - FATIGUE [None]
